FAERS Safety Report 11413062 (Version 1)
Quarter: 2015Q3

REPORT INFORMATION
  Report Type: Other
  Country: None (occurrence: US)
  Receive Date: 20150824
  Receipt Date: 20150824
  Transmission Date: 20151125
  Serious: Yes (Hospitalization)
  Sender: FDA-Public Use
  Company Number: US-MERCK KGAA-1041323

PATIENT

DRUGS (1)
  1. NOVOTHYROX [Suspect]
     Active Substance: LEVOTHYROXINE SODIUM

REACTIONS (6)
  - Blood lactic acid increased [None]
  - Suicide attempt [None]
  - Intentional overdose [None]
  - Hyperthyroidism [None]
  - Syncope [None]
  - Poisoning [None]
